FAERS Safety Report 9651770 (Version 1)
Quarter: 2013Q4

REPORT INFORMATION
  Report Type: Spontaneous
  Country: US (occurrence: None)
  Receive Date: 20131028
  Receipt Date: 20131028
  Transmission Date: 20140711
  Serious: Yes (Hospitalization, Other)
  Sender: FDA-Public Use
  Company Number: None

PATIENT
  Age: 83 Year
  Sex: Female
  Weight: 87.5 kg

DRUGS (6)
  1. PROLIA [Suspect]
  2. LOVASTATIN [Concomitant]
  3. PREDNISONE [Concomitant]
  4. CALCIUM WITH VITAMIN D [Concomitant]
  5. VERAPAMIL [Concomitant]
  6. HYDROCODONE/APAP [Concomitant]

REACTIONS (4)
  - Cardiac failure congestive [None]
  - Angioplasty [None]
  - Pneumonia [None]
  - Coronary artery stenosis [None]
